FAERS Safety Report 5580329-4 (Version None)
Quarter: 2008Q1

REPORT INFORMATION
  Report Type: 
  Country: None (occurrence: None)
  Receive Date: 20080103
  Receipt Date: 20071227
  Transmission Date: 20080703
  Serious: Yes (Hospitalization)
  Sender: FDA-Public Use
  Company Number: US-JNJFOC-20071206292

PATIENT
  Sex: Female

DRUGS (1)
  1. INVEGA [Suspect]
     Indication: PSYCHOTIC DISORDER
     Route: 048

REACTIONS (1)
  - PNEUMONIA [None]
